FAERS Safety Report 9040448 (Version 1)
Quarter: 2013Q1

REPORT INFORMATION
  Report Type: Report from Study
  Country: US (occurrence: US)
  Receive Date: 20130129
  Receipt Date: 20130129
  Transmission Date: 20140127
  Serious: No
  Sender: FDA-Public Use
  Company Number: US-ABBOTT-12P-163-0891336-00

PATIENT
  Age: 27 Year
  Sex: Female

DRUGS (4)
  1. HUMIRA 40 MG/0.8 ML PEN [Suspect]
     Indication: COLITIS ULCERATIVE
     Dates: start: 20111201
  2. ASACOL [Concomitant]
     Indication: COLITIS ULCERATIVE
  3. ADVAIR [Concomitant]
     Indication: ASTHMA
  4. IRON [Concomitant]
     Indication: ANAEMIA
     Dates: start: 20120108

REACTIONS (1)
  - Pruritus [Recovering/Resolving]
